FAERS Safety Report 4850910-6 (Version None)
Quarter: 2005Q4

REPORT INFORMATION
  Report Type: 
  Country: None (occurrence: None)
  Receive Date: 20051212
  Receipt Date: 20051202
  Transmission Date: 20060501
  Serious: Yes (Other)
  Sender: FDA-Public Use
  Company Number: JP-JPN-A20052964

PATIENT
  Sex: Female

DRUGS (1)
  1. ZEFIX [Suspect]
     Dosage: 100MG PER DAY
     Route: 048

REACTIONS (2)
  - BLOOD AMYLASE INCREASED [None]
  - COUGH [None]
